FAERS Safety Report 6388430-2 (Version None)
Quarter: 2009Q4

REPORT INFORMATION
  Report Type: 
  Country: None (occurrence: None)
  Receive Date: 20091005
  Receipt Date: 20090929
  Transmission Date: 20100525
  Serious: Yes (Hospitalization)
  Sender: FDA-Public Use
  Company Number: SE-BRISTOL-MYERS SQUIBB COMPANY-14802250

PATIENT
  Age: 15 Year
  Sex: Female

DRUGS (2)
  1. ABILIFY [Suspect]
     Indication: AUTISM SPECTRUM DISORDER
     Dosage: DURATION:6 MONTHS AGO DOSE INCREASED TO 15MG TWO MONTHS AGO DOSE TO BE DECREASED TO 10 MG
  2. FONTEX [Suspect]
     Indication: AUTISM SPECTRUM DISORDER
     Dosage: DURATION:6 MONTHS AGO

REACTIONS (2)
  - AUTISM SPECTRUM DISORDER [None]
  - WEIGHT INCREASED [None]
